FAERS Safety Report 17227756 (Version 1)
Quarter: 2020Q1

REPORT INFORMATION
  Report Type: Spontaneous
  Country: BE (occurrence: BE)
  Receive Date: 20200103
  Receipt Date: 20200103
  Transmission Date: 20200409
  Serious: Yes (Other)
  Sender: FDA-Public Use
  Company Number: BE-AUROBINDO-AUR-APL-2019-109017

PATIENT
  Age: 45 Year
  Sex: Male

DRUGS (2)
  1. ESCITALOPRAM [Suspect]
     Active Substance: ESCITALOPRAM OXALATE
     Indication: AUTISM SPECTRUM DISORDER
     Dosage: 5 MILLIGRAM, ONCE A DAY
     Route: 048
  2. TECFIDERA [Suspect]
     Active Substance: DIMETHYL FUMARATE
     Indication: MULTIPLE SCLEROSIS
     Dosage: 480 MILLIGRAM, ONCE A DAY
     Route: 048
     Dates: start: 201807

REACTIONS (1)
  - Bladder transitional cell carcinoma [Recovering/Resolving]

NARRATIVE: CASE EVENT DATE: 201908
